FAERS Safety Report 20664390 (Version 1)
Quarter: 2022Q2

REPORT INFORMATION
  Report Type: Spontaneous
  Country: HR (occurrence: None)
  Receive Date: 20220401
  Receipt Date: 20220401
  Transmission Date: 20220721
  Serious: Yes (Other)
  Sender: FDA-Public Use
  Company Number: 2022A127214

PATIENT
  Age: 71 Year
  Sex: Male

DRUGS (3)
  1. QUETIAPINE FUMARATE [Suspect]
     Active Substance: QUETIAPINE FUMARATE
     Route: 048
  2. ALPRAZOLAM [Suspect]
     Active Substance: ALPRAZOLAM
     Route: 048
  3. MAPROTILINE HYDROCHLORIDE [Suspect]
     Active Substance: MAPROTILINE HYDROCHLORIDE
     Route: 048

REACTIONS (2)
  - Suicide attempt [Unknown]
  - Sopor [Unknown]

NARRATIVE: CASE EVENT DATE: 20211102
